FAERS Safety Report 15752261 (Version 4)
Quarter: 2019Q2

REPORT INFORMATION
  Report Type: Spontaneous
  Country: US (occurrence: US)
  Receive Date: 20181221
  Receipt Date: 20190412
  Transmission Date: 20190711
  Serious: No
  Sender: FDA-Public Use
  Company Number: US-BIOMARINAP-US-2018-121222

PATIENT
  Age: 29 Year
  Sex: Male
  Weight: 27 kg

DRUGS (1)
  1. VIMIZIM [Suspect]
     Active Substance: ELOSULFASE ALFA
     Indication: MUCOPOLYSACCHARIDOSIS IV
     Dosage: 60 MILLIGRAM, QW
     Route: 042
     Dates: start: 20150910

REACTIONS (3)
  - Pain [Not Recovered/Not Resolved]
  - Product dose omission [Unknown]
  - Migraine [Unknown]

NARRATIVE: CASE EVENT DATE: 20181214
